FAERS Safety Report 24890731 (Version 1)
Quarter: 2025Q1

REPORT INFORMATION
  Report Type: Report from Study
  Country: CO (occurrence: CO)
  Receive Date: 20250127
  Receipt Date: 20250127
  Transmission Date: 20250409
  Serious: Yes (Other)
  Sender: NOVARTIS
  Company Number: CO-002147023-NVSC2023CO085756

PATIENT
  Age: 55 Year
  Sex: Female
  Weight: 72 kg

DRUGS (7)
  1. COSENTYX [Suspect]
     Active Substance: SECUKINUMAB
     Indication: Psoriatic arthropathy
     Dosage: 300 MG, QMO
     Route: 058
     Dates: start: 20220825, end: 20241119
  2. COSENTYX [Suspect]
     Active Substance: SECUKINUMAB
     Indication: Psoriasis
     Dosage: 150 MG, QMO (8 MONTHS AGO)
     Route: 058
     Dates: end: 202303
  3. COSENTYX [Suspect]
     Active Substance: SECUKINUMAB
     Dosage: 300 MG, QMO
     Route: 058
     Dates: start: 20230413
  4. COSENTYX [Suspect]
     Active Substance: SECUKINUMAB
     Dosage: 300 MG, QMO
     Route: 058
  5. COSENTYX [Suspect]
     Active Substance: SECUKINUMAB
     Dosage: 300 MG, QMO
     Route: 058
     Dates: start: 20241119
  6. ETORICOXIB [Concomitant]
     Active Substance: ETORICOXIB
     Indication: Pain
     Dosage: 1 DF, Q24H (IF PAIN CRISIS: 1 EVERY 24 HOURS, SINCE MORE THAN 7 YEARS)
     Route: 048
  7. METHOTREXATE [Concomitant]
     Active Substance: METHOTREXATE
     Indication: Psoriatic arthropathy
     Dosage: 25 MG, QW (SINCE 2 YEARS)
     Route: 065

REACTIONS (31)
  - Osteomyelitis [Recovered/Resolved]
  - Viral infection [Recovered/Resolved]
  - Oral infection [Recovered/Resolved]
  - Malaise [Recovered/Resolved]
  - Tympanic membrane perforation [Recovered/Resolved]
  - Neuralgia [Unknown]
  - Influenza [Not Recovered/Not Resolved]
  - Nasal congestion [Recovered/Resolved]
  - Pyrexia [Recovered/Resolved]
  - Chronic sinusitis [Unknown]
  - Arthralgia [Recovered/Resolved]
  - Swelling face [Recovered/Resolved]
  - Spinal pain [Recovered/Resolved]
  - Facial pain [Recovered/Resolved]
  - Inflammation [Recovered/Resolved]
  - Pain [Unknown]
  - Overweight [Unknown]
  - Abdominal discomfort [Unknown]
  - Vomiting [Unknown]
  - Noninfective gingivitis [Unknown]
  - Dermatitis [Unknown]
  - Gingival pain [Unknown]
  - Peripheral swelling [Unknown]
  - Maxillofacial pain [Unknown]
  - Loose tooth [Unknown]
  - Tooth disorder [Recovered/Resolved]
  - Toothache [Recovered/Resolved]
  - Chills [Not Recovered/Not Resolved]
  - Arthralgia [Not Recovered/Not Resolved]
  - Spinal pain [Not Recovered/Not Resolved]
  - Product availability issue [Unknown]

NARRATIVE: CASE EVENT DATE: 20230301
